FAERS Safety Report 5578591-7 (Version None)
Quarter: 2007Q4

REPORT INFORMATION
  Report Type: 
  Country: None (occurrence: None)
  Receive Date: 20071231
  Receipt Date: 20071225
  Transmission Date: 20080405
  Serious: Yes (Hospitalization)
  Sender: FDA-Public Use
  Company Number: PHBS2007JP21508

PATIENT
  Sex: Female

DRUGS (1)
  1. METHYLPHENIDATE HCL [Suspect]
     Indication: DEPRESSION
     Dates: start: 20070101

REACTIONS (5)
  - ABASIA [None]
  - AMNESIA [None]
  - CONFUSIONAL STATE [None]
  - DECREASED APPETITE [None]
  - ROAD TRAFFIC ACCIDENT [None]
